FAERS Safety Report 18594388 (Version 1)
Quarter: 2020Q4

REPORT INFORMATION
  Report Type: Spontaneous
  Country: DK (occurrence: DK)
  Receive Date: 20201209
  Receipt Date: 20201209
  Transmission Date: 20210114
  Serious: Yes (Hospitalization)
  Sender: FDA-Public Use
  Company Number: DK-ENDO PHARMACEUTICALS INC-2020-007627

PATIENT
  Age: 48 Year
  Sex: Male
  Weight: 119 kg

DRUGS (4)
  1. ALNOK [Concomitant]
     Active Substance: CETIRIZINE HYDROCHLORIDE
     Indication: SEASONAL ALLERGY
     Dosage: UNK UNKNOWN, UNKNOWN
     Route: 065
     Dates: start: 20160409
  2. AVEED [Suspect]
     Active Substance: TESTOSTERONE UNDECANOATE
     Indication: KLINEFELTER^S SYNDROME
     Dosage: 1000 MG, UNKNOWN; EVERY 6 WEEKS
     Route: 030
     Dates: start: 20201014, end: 20201022
  3. PROPRANOLOL [Concomitant]
     Active Substance: PROPRANOLOL HYDROCHLORIDE
     Indication: TREMOR
     Dosage: UNK UNKNOWN, UNKNOWN
     Route: 065
     Dates: start: 20130205
  4. BAKLOFEN MYLAN [Concomitant]
     Active Substance: BACLOFEN
     Indication: MUSCLE SPASTICITY
     Dosage: UNK UNKNOWN, UNKNOWN
     Route: 065
     Dates: start: 20110806

REACTIONS (1)
  - Epilepsy [Recovering/Resolving]

NARRATIVE: CASE EVENT DATE: 20201022
